FAERS Safety Report 10356728 (Version 2)
Quarter: 2014Q3

REPORT INFORMATION
  Report Type: Report from Study
  Country: PK (occurrence: PK)
  Receive Date: 20140801
  Receipt Date: 20140826
  Transmission Date: 20150326
  Serious: No
  Sender: FDA-Public Use
  Company Number: PK-ROCHE-1440310

PATIENT

DRUGS (6)
  1. BEVACIZUMAB [Suspect]
     Active Substance: BEVACIZUMAB
     Indication: DIABETIC RETINOPATHY
     Dosage: THREE DOSES OF INTRAVITREAL BEVACIZUMAB AT MONTHLY INTERVAL (1.25MG IN 0.05ML WITH 1ML SYRINGE).
     Route: 050
  2. BEVACIZUMAB [Suspect]
     Active Substance: BEVACIZUMAB
     Indication: CHOROIDAL NEOVASCULARISATION
  3. POVIDONE IODINE [Concomitant]
     Active Substance: POVIDONE-IODINE
     Route: 065
  4. PROPARACAINE [Concomitant]
     Active Substance: PROPARACAINE
     Route: 061
  5. BEVACIZUMAB [Suspect]
     Active Substance: BEVACIZUMAB
     Indication: AGE-RELATED MACULAR DEGENERATION
  6. BEVACIZUMAB [Suspect]
     Active Substance: BEVACIZUMAB
     Indication: RETINAL NEOVASCULARISATION

REACTIONS (7)
  - Blood sodium increased [Unknown]
  - Prothrombin time prolonged [Unknown]
  - Blood fibrinogen decreased [Unknown]
  - Platelet count decreased [Unknown]
  - Blood pressure diastolic increased [Unknown]
  - Off label use [Unknown]
  - Blood pressure systolic increased [Unknown]
